FAERS Safety Report 24854477 (Version 1)
Quarter: 2025Q1

REPORT INFORMATION
  Report Type: Report from Study
  Country: US (occurrence: US)
  Receive Date: 20250117
  Receipt Date: 20250117
  Transmission Date: 20250408
  Serious: Yes (Hospitalization)
  Sender: ABBVIE
  Company Number: US-ABBVIE-6084447

PATIENT
  Sex: Male

DRUGS (1)
  1. SKYRIZI [Suspect]
     Active Substance: RISANKIZUMAB-RZAA
     Indication: Crohn^s disease
     Route: 058
     Dates: start: 20241119

REACTIONS (4)
  - Intestinal obstruction [Recovering/Resolving]
  - Flushing [Recovering/Resolving]
  - Feeling abnormal [Recovered/Resolved]
  - Dyspnoea [Recovering/Resolving]
